FAERS Safety Report 23083814 (Version 5)
Quarter: 2023Q4

REPORT INFORMATION
  Report Type: Report from Study
  Country: JP (occurrence: JP)
  Receive Date: 20231019
  Receipt Date: 20231219
  Transmission Date: 20240109
  Serious: Yes (Hospitalization)
  Sender: FDA-Public Use
  Company Number: JP-ALNYLAM PHARMACEUTICALS, INC.-ALN-2023-001597

PATIENT

DRUGS (5)
  1. AMVUTTRA [Suspect]
     Active Substance: VUTRISIRAN
     Indication: Hereditary neuropathic amyloidosis
     Dosage: 25 MILLIGRAM, Q3M
     Route: 058
     Dates: start: 20230201, end: 20231106
  2. UNSPECIFIED INGREDIENT [Concomitant]
     Active Substance: UNSPECIFIED INGREDIENT
     Indication: Product used for unknown indication
     Dosage: 1 DOSAGE FORM
     Route: 048
  3. BEPOTASTINE BESYLATE [Concomitant]
     Active Substance: BEPOTASTINE BESYLATE
     Indication: Hypersensitivity
     Dosage: 2 DOSAGE FORM
     Route: 048
  4. MILNACIPRAN HYDROCHLORIDE [Concomitant]
     Active Substance: MILNACIPRAN HYDROCHLORIDE
     Indication: Product used for unknown indication
     Dosage: UNKNOWN
     Route: 048
  5. BEPOTASTINE BESYLATE [Concomitant]
     Active Substance: BEPOTASTINE BESYLATE
     Indication: Product used for unknown indication
     Dosage: 1 DOSAGE FORM/DAY
     Route: 048

REACTIONS (19)
  - Dehydration [Recovered/Resolved]
  - Cellulitis [Recovering/Resolving]
  - Fall [Recovered/Resolved]
  - Rib fracture [Recovered/Resolved]
  - Muscular weakness [Unknown]
  - Dizziness [Unknown]
  - Pyrexia [Recovered/Resolved]
  - Headache [Recovered/Resolved]
  - Feeling cold [Recovered/Resolved]
  - Hypoaesthesia [Unknown]
  - Hypoaesthesia [Not Recovered/Not Resolved]
  - Performance status decreased [Unknown]
  - Weight increased [Unknown]
  - Back pain [Not Recovered/Not Resolved]
  - Abdominal discomfort [Unknown]
  - Hypersensitivity [Recovered/Resolved]
  - Injection site pain [Recovering/Resolving]
  - Injection site discomfort [Recovering/Resolving]
  - Fatigue [Unknown]

NARRATIVE: CASE EVENT DATE: 20230101
